FAERS Safety Report 5594548-4 (Version None)
Quarter: 2008Q1

REPORT INFORMATION
  Report Type: 
  Country: None (occurrence: None)
  Receive Date: 20080117
  Receipt Date: 20080111
  Transmission Date: 20080703
  Serious: Yes (Other)
  Sender: FDA-Public Use
  Company Number: US-ASTRAZENECA-2008UW00892

PATIENT
  Age: 46 Year
  Sex: Female
  Weight: 75.7 kg

DRUGS (2)
  1. FASLODEX [Suspect]
     Indication: BREAST CANCER
     Route: 030
     Dates: start: 20071201
  2. HERCEPTIN [Concomitant]
     Dates: start: 20050101

REACTIONS (2)
  - DYSPNOEA [None]
  - HYPOTENSION [None]
